FAERS Safety Report 8780487 (Version 1)
Quarter: 2012Q4

REPORT INFORMATION
  Report Type: Spontaneous
  Country: US (occurrence: None)
  Receive Date: 20120906
  Receipt Date: 20120906
  Transmission Date: 20130627
  Serious: Yes (Life-Threatening, Hospitalization, Other)
  Sender: FDA-Public Use
  Company Number: None

PATIENT
  Age: 49 Year
  Sex: Male
  Weight: 104.33 kg

DRUGS (1)
  1. METOCLOPRAMIDE [Suspect]
     Dosage: 1 pill at bedtime
     Route: 048
     Dates: start: 20100925, end: 20110510

REACTIONS (3)
  - Depression [None]
  - Suicidal ideation [None]
  - Drug ineffective [None]
